FAERS Safety Report 9663867 (Version 1)
Quarter: 2013Q4

REPORT INFORMATION
  Report Type: Spontaneous
  Country: GB (occurrence: GB)
  Receive Date: 20131101
  Receipt Date: 20131101
  Transmission Date: 20140711
  Serious: Yes (Other)
  Sender: FDA-Public Use
  Company Number: GB-ASTELLAS-2013EU009349

PATIENT
  Sex: Female

DRUGS (3)
  1. VESICARE [Suspect]
     Dosage: UNK
     Route: 065
  2. NAPROXEN [Concomitant]
     Dosage: UNK
     Route: 065
  3. QUININE SULPHATE [Concomitant]
     Dosage: UNK
     Route: 065

REACTIONS (1)
  - Renal failure chronic [Unknown]
